FAERS Safety Report 7340592-6 (Version None)
Quarter: 2011Q1

REPORT INFORMATION
  Report Type: 
  Country: None (occurrence: None)
  Receive Date: 20110309
  Receipt Date: 20110228
  Transmission Date: 20110831
  Serious: Yes (Hospitalization, Disabling, Other)
  Sender: FDA-Public Use
  Company Number: PHHY2010US29600

PATIENT
  Sex: Male

DRUGS (5)
  1. DEPAKOTE [Concomitant]
     Indication: EPILEPSY
     Dosage: UNK
  2. EXTAVIA [Suspect]
     Indication: MULTIPLE SCLEROSIS
     Dosage: 0.25 MG, QOD
     Route: 058
     Dates: start: 20100313
  3. DOANS [Concomitant]
     Dosage: UNK
  4. ABILIFY [Concomitant]
     Dosage: UNK
  5. ZOLOFT [Concomitant]
     Indication: DEPRESSION
     Dosage: UNK,UNK

REACTIONS (7)
  - CONVULSION [None]
  - FRUSTRATION [None]
  - FATIGUE [None]
  - GAIT DISTURBANCE [None]
  - INCONTINENCE [None]
  - IMPAIRED DRIVING ABILITY [None]
  - DEPRESSION [None]
